FAERS Safety Report 4591529-4 (Version None)
Quarter: 2005Q1

REPORT INFORMATION
  Report Type: 
  Country: None (occurrence: None)
  Receive Date: 20050222
  Receipt Date: 20050214
  Transmission Date: 20050727
  Serious: Yes (Hospitalization, Other)
  Sender: FDA-Public Use
  Company Number: 2005026378

PATIENT
  Age: 59 Year
  Sex: Male

DRUGS (5)
  1. CELEBREX [Suspect]
     Indication: ARTHRITIS
     Dosage: 200 MG, DAILY, ORAL
     Route: 048
     Dates: start: 20020601, end: 20050114
  2. SIMVASTATIN [Concomitant]
  3. LAMOTRIGINE [Concomitant]
  4. GABAPENTIN [Concomitant]
  5. FLUVOXAMINE MALEATE [Concomitant]

REACTIONS (2)
  - CARDIOMYOPATHY [None]
  - MYOCARDIAL INFARCTION [None]
